FAERS Safety Report 14952872 (Version 1)
Quarter: 2018Q2

REPORT INFORMATION
  Report Type: Spontaneous
  Country: US (occurrence: US)
  Receive Date: 20180530
  Receipt Date: 20180530
  Transmission Date: 20180711
  Serious: No
  Sender: FDA-Public Use
  Company Number: US-BIODELIVERY SCIENCES INTERNATIONAL-2018BDSI0053

PATIENT
  Sex: Female

DRUGS (5)
  1. OXYCODONE [Concomitant]
     Active Substance: OXYCODONE
     Route: 048
  2. BUPRENORPHINE. [Suspect]
     Active Substance: BUPRENORPHINE
     Indication: ARTHRALGIA
     Dosage: UNKNOWN; UNKNOWN
     Route: 002
     Dates: start: 201712
  3. BUPRENORPHINE. [Suspect]
     Active Substance: BUPRENORPHINE
     Dosage: UNKNOWN; UNKNOWN
     Route: 002
  4. OXYCODONE [Concomitant]
     Active Substance: OXYCODONE
     Indication: ARTHRITIS
     Route: 048
  5. BUPRENORPHINE. [Suspect]
     Active Substance: BUPRENORPHINE
     Route: 002

REACTIONS (6)
  - Product physical consistency issue [Unknown]
  - Drug prescribing error [Unknown]
  - Product adhesion issue [Unknown]
  - Therapeutic response decreased [Unknown]
  - Wrong technique in product usage process [Recovered/Resolved]
  - Product physical issue [Unknown]

NARRATIVE: CASE EVENT DATE: 201712
